FAERS Safety Report 17402711 (Version 1)
Quarter: 2020Q1

REPORT INFORMATION
  Report Type: Spontaneous
  Country: US (occurrence: US)
  Receive Date: 20200210
  Receipt Date: 20200210
  Transmission Date: 20200409
  Serious: No
  Sender: FDA-Public Use
  Company Number: None

PATIENT
  Age: 39 Year
  Sex: Female
  Weight: 82.35 kg

DRUGS (9)
  1. MONTELUKAST [Concomitant]
     Active Substance: MONTELUKAST SODIUM
  2. BUSPIRONE [Concomitant]
     Active Substance: BUSPIRONE HYDROCHLORIDE
  3. SERTRALINE [Concomitant]
     Active Substance: SERTRALINE HYDROCHLORIDE
  4. RIZATRIPTAN. [Concomitant]
     Active Substance: RIZATRIPTAN
  5. PEAK FLOW METER [Concomitant]
  6. LAMICTAL [Concomitant]
     Active Substance: LAMOTRIGINE
  7. PROAIR HFA [Concomitant]
     Active Substance: ALBUTEROL SULFATE
  8. LAMICTAL [Suspect]
     Active Substance: LAMOTRIGINE
     Indication: BIPOLAR DISORDER
     Dosage: ?          QUANTITY:1 TABLET(S);?
     Route: 048
  9. ASMANEX INHALER [Concomitant]

REACTIONS (7)
  - Skin warm [None]
  - Recalled product administered [None]
  - Hypersensitivity [None]
  - Injection site pruritus [None]
  - Injection site swelling [None]
  - Injection site pain [None]
  - Product contamination [None]

NARRATIVE: CASE EVENT DATE: 20191201
